FAERS Safety Report 7468308-3 (Version None)
Quarter: 2011Q2

REPORT INFORMATION
  Report Type: 
  Country: None (occurrence: None)
  Receive Date: 20110509
  Receipt Date: 20101004
  Transmission Date: 20111010
  Serious: Yes (Hospitalization)
  Sender: FDA-Public Use
  Company Number: PHHY2010FR90991

PATIENT

DRUGS (1)
  1. ZOMETA [Suspect]
     Indication: METASTASES TO BONE
     Route: 042

REACTIONS (2)
  - GENERAL PHYSICAL CONDITION ABNORMAL [None]
  - FALL [None]
